FAERS Safety Report 9456023 (Version 1)
Quarter: 2013Q3

REPORT INFORMATION
  Report Type: Spontaneous
  Country: DE (occurrence: None)
  Receive Date: 20130808
  Receipt Date: 20130808
  Transmission Date: 20140515
  Serious: Yes (Hospitalization)
  Sender: FDA-Public Use
  Company Number: DE-LHC-2013033

PATIENT
  Age: 67 Year
  Sex: Female
  Weight: 56 kg

DRUGS (2)
  1. OXYGEN [Suspect]
     Indication: PRODUCT USED FOR UNKNOWN INDICATION
  2. AROMASIN (EXEMESTANE) [Concomitant]

REACTIONS (5)
  - Bronchial carcinoma [None]
  - Second primary malignancy [None]
  - Haemoglobin decreased [None]
  - Neoplasm malignant [None]
  - Metastases to liver [None]
